FAERS Safety Report 6521989 (Version 2)
Quarter: 2013Q1

REPORT INFORMATION
  Report Type: Spontaneous
  Country: US (occurrence: US)
  Receive Date: 20080109
  Receipt Date: 20130320
  Transmission Date: 20140127
  Serious: Yes (Hospitalization, Congenital Anomaly, Other)
  Sender: FDA-Public Use
  Company Number: US-RB-008904-08

PATIENT
  Age: 0 None
  Sex: Male
  Weight: 2 kg

DRUGS (3)
  1. SUBUTEX [Suspect]
     Indication: DRUG DEPENDENCE
     Route: 064
     Dates: start: 200704, end: 20071202
  2. SUBOXONE [Suspect]
     Indication: DRUG DEPENDENCE
     Route: 064
     Dates: start: 200703, end: 200704
  3. METHYLDOPA [Concomitant]
     Indication: HYPERTENSION
     Dosage: DOSAGE UNKNOWN
     Route: 064
     Dates: start: 2007, end: 20071202

REACTIONS (3)
  - Foetal exposure during pregnancy [Recovered/Resolved]
  - Tracheo-oesophageal fistula [Recovered/Resolved]
  - Polydactyly [Not Recovered/Not Resolved]
